FAERS Safety Report 17889228 (Version 1)
Quarter: 2020Q2

REPORT INFORMATION
  Report Type: Spontaneous
  Country: US (occurrence: US)
  Receive Date: 20200612
  Receipt Date: 20200612
  Transmission Date: 20200714
  Serious: No
  Sender: FDA-Public Use
  Company Number: US-HIKMA PHARMACEUTICALS USA INC.-US-H14001-19-06156

PATIENT
  Age: 70 Year
  Sex: Male
  Weight: 81.63 kg

DRUGS (2)
  1. FLUTICASONE. [Suspect]
     Active Substance: FLUTICASONE
     Route: 045
     Dates: start: 20191202
  2. FLUTICASONE. [Suspect]
     Active Substance: FLUTICASONE
     Indication: EAR DISCOMFORT
     Route: 045
     Dates: start: 20191125, end: 20191201

REACTIONS (3)
  - Underdose [Unknown]
  - Drug ineffective for unapproved indication [Unknown]
  - Inappropriate schedule of product administration [Unknown]

NARRATIVE: CASE EVENT DATE: 20191125
